FAERS Safety Report 21612105 (Version 1)
Quarter: 2022Q4

REPORT INFORMATION
  Report Type: Report from Study
  Country: US (occurrence: US)
  Receive Date: 20221118
  Receipt Date: 20221118
  Transmission Date: 20230112
  Serious: Yes (Hospitalization, Other)
  Sender: FDA-Public Use
  Company Number: US-TAKEDA-2022TUS085342

PATIENT
  Sex: Male

DRUGS (16)
  1. VELAGLUCERASE ALFA [Suspect]
     Active Substance: VELAGLUCERASE ALFA
     Indication: Gaucher^s disease
     Dosage: 30 INTERNATIONAL UNIT/KILOGRAM, Q2WEEKS
     Route: 065
     Dates: start: 20091014, end: 20150608
  2. VELAGLUCERASE ALFA [Suspect]
     Active Substance: VELAGLUCERASE ALFA
     Dosage: 60 INTERNATIONAL UNIT/KILOGRAM
     Route: 065
     Dates: start: 20150612
  3. TADALAFIL [Concomitant]
     Active Substance: TADALAFIL
     Indication: Benign prostatic hyperplasia
     Dosage: 5 MILLIGRAM, QD
     Route: 048
     Dates: start: 20080410
  4. IBANDRONATE SODIUM [Concomitant]
     Active Substance: IBANDRONATE SODIUM
     Indication: Gaucher^s disease
     Dosage: UNK UNK, MONTHLY
     Route: 048
     Dates: start: 20090617
  5. HYDROQUINONE [Concomitant]
     Active Substance: HYDROQUINONE
     Indication: Skin hyperpigmentation
     Dosage: UNK UNK, BID
     Route: 061
     Dates: start: 20110111, end: 20160309
  6. NAPROXEN SODIUM [Concomitant]
     Active Substance: NAPROXEN SODIUM
     Indication: Pain
     Dosage: UNK
     Route: 048
     Dates: start: 20110215
  7. LISINOPRIL [Concomitant]
     Active Substance: LISINOPRIL
     Indication: Hypertension
     Dosage: UNK UNK, BID
     Route: 048
     Dates: start: 20111123
  8. ACETAMINOPHEN\OXYCODONE HYDROCHLORIDE [Concomitant]
     Active Substance: ACETAMINOPHEN\OXYCODONE HYDROCHLORIDE
     Indication: Pain
     Dosage: UNK
     Route: 048
     Dates: start: 20111130, end: 20111230
  9. SILVER SULFADIAZINE [Concomitant]
     Active Substance: SILVER SULFADIAZINE
     Indication: Radiation skin injury
     Dosage: UNK UNK, BID
     Route: 061
     Dates: start: 20120214, end: 201204
  10. HYDROCORTISONE [Concomitant]
     Active Substance: HYDROCORTISONE
     Indication: Dermatitis
     Dosage: UNK UNK, BID
     Route: 061
     Dates: start: 20120430
  11. DEVICE [Concomitant]
     Active Substance: DEVICE
     Indication: Dermatitis
     Dosage: UNK UNK, BID
     Route: 061
     Dates: start: 20120509
  12. DICLOFENAC [Concomitant]
     Active Substance: DICLOFENAC
     Indication: Pain
     Dosage: UNK
     Route: 061
     Dates: start: 20131125
  13. MELOXICAM [Concomitant]
     Active Substance: MELOXICAM
     Indication: Pain
     Dosage: UNK UNK, QD
     Route: 048
     Dates: start: 20131126, end: 20150805
  14. CODEINE GUAIFENESIN [Concomitant]
     Active Substance: CODEINE PHOSPHATE\GUAIFENESIN
     Indication: Cough
     Dosage: UNK
     Route: 048
     Dates: start: 20140326, end: 20140415
  15. FLOMAX [Concomitant]
     Active Substance: TAMSULOSIN HYDROCHLORIDE
     Indication: Pollakiuria
     Dosage: 0.4 MILLIGRAM, QD
     Route: 048
     Dates: start: 20201119
  16. FLOMAX [Concomitant]
     Active Substance: TAMSULOSIN HYDROCHLORIDE
     Indication: Urinary retention

REACTIONS (1)
  - Acute myocardial infarction [Recovered/Resolved]

NARRATIVE: CASE EVENT DATE: 20220913
